FAERS Safety Report 8045809-0 (Version None)
Quarter: 2012Q1

REPORT INFORMATION
  Report Type: 
  Country: None (occurrence: None)
  Receive Date: 20120113
  Receipt Date: 20120109
  Transmission Date: 20120608
  Serious: No
  Sender: FDA-Public Use
  Company Number: US-B.I. PHARMACEUTICALS,INC./RIDGEFIELD-2012-BP-00444BP

PATIENT
  Age: 72 Year
  Sex: Female

DRUGS (4)
  1. SPIRIVA [Suspect]
     Route: 048
     Dates: start: 20120109, end: 20120109
  2. DUONEB [Concomitant]
     Indication: ASTHMA
  3. SPIRIVA [Suspect]
     Indication: CHRONIC OBSTRUCTIVE PULMONARY DISEASE
     Dosage: 18 MCG
     Route: 055
     Dates: start: 20091109
  4. NULEV [Concomitant]
     Indication: ABDOMINAL PAIN UPPER

REACTIONS (1)
  - INCORRECT ROUTE OF DRUG ADMINISTRATION [None]
